FAERS Safety Report 11734286 (Version 1)
Quarter: 2015Q4

REPORT INFORMATION
  Report Type: Spontaneous
  Country: US (occurrence: US)
  Receive Date: 20151113
  Receipt Date: 20151113
  Transmission Date: 20160304
  Serious: Yes (Other)
  Sender: FDA-Public Use
  Company Number: US-TEVA-608026ACC

PATIENT
  Age: 31 Year
  Sex: Female
  Weight: 62.2 kg

DRUGS (1)
  1. PARAGARD T 380A [Suspect]
     Active Substance: COPPER
     Indication: CONTRACEPTION
     Dates: start: 20151105, end: 20151105

REACTIONS (2)
  - Exposure during breast feeding [Unknown]
  - Uterine perforation [Recovered/Resolved]

NARRATIVE: CASE EVENT DATE: 20151105
